FAERS Safety Report 8446854-3 (Version None)
Quarter: 2012Q2

REPORT INFORMATION
  Report Type: 
  Country: None (occurrence: None)
  Receive Date: 20120612
  Receipt Date: 20120612
  Transmission Date: 20120825
  Serious: Yes (Hospitalization)
  Sender: FDA-Public Use
  Company Number: None

PATIENT
  Sex: Male
  Weight: 85.503 kg

DRUGS (11)
  1. ZILEUTON [Concomitant]
  2. ALBUTEROL [Concomitant]
  3. LATUDA [Suspect]
     Indication: SCHIZOAFFECTIVE DISORDER
     Dosage: 80MG PO QHS
     Route: 048
     Dates: start: 20120403, end: 20120430
  4. CLONAZEPAM [Concomitant]
  5. PSYLLIUM [Concomitant]
  6. FLUTICASONE AND SALMETEROL [Concomitant]
  7. BECLOMETHASONE DIPROPIONATE [Concomitant]
  8. THEOPHYLLINE [Concomitant]
  9. LEVOTHYROXINE [Concomitant]
  10. MONTELUKAST [Concomitant]
  11. QUETIAPINE [Suspect]

REACTIONS (4)
  - HOMICIDAL IDEATION [None]
  - SCREAMING [None]
  - DELUSION [None]
  - ABNORMAL BEHAVIOUR [None]
